FAERS Safety Report 5188560-7 (Version None)
Quarter: 2006Q4

REPORT INFORMATION
  Report Type: 
  Country: None (occurrence: None)
  Receive Date: 20061214
  Receipt Date: 20061206
  Transmission Date: 20070319
  Serious: Yes (Other)
  Sender: FDA-Public Use
  Company Number: 233615

PATIENT
  Age: 65 Year
  Sex: Male

DRUGS (1)
  1. LUCENTIS (RANIBIZUMAB) PWDR + SOLENT, INJECTION SOLN [Suspect]
     Indication: MACULAR DEGENERATION
     Dosage: 0.5 MG, 1/MONTH, INTRAVENOUS
     Route: 042
     Dates: start: 20060915

REACTIONS (5)
  - CHILLS [None]
  - DYSARTHRIA [None]
  - EAR DISCOMFORT [None]
  - HYPOAESTHESIA [None]
  - MUSCLE SPASMS [None]
